FAERS Safety Report 9784304 (Version 1)
Quarter: 2013Q4

REPORT INFORMATION
  Report Type: Spontaneous
  Country: US (occurrence: US)
  Receive Date: 20131226
  Receipt Date: 20131226
  Transmission Date: 20140711
  Serious: No
  Sender: FDA-Public Use
  Company Number: US-BIOGENIDEC-2013BI122377

PATIENT
  Age: 62 Year
  Sex: Female

DRUGS (1)
  1. TECFIDERA [Suspect]
     Indication: MULTIPLE SCLEROSIS
     Route: 048
     Dates: start: 20130901

REACTIONS (6)
  - Constipation [Unknown]
  - Sinus congestion [Unknown]
  - Rhinorrhoea [Unknown]
  - Flushing [Unknown]
  - Abdominal discomfort [Unknown]
  - Diarrhoea [Unknown]
